FAERS Safety Report 9250927 (Version 1)
Quarter: 2013Q1

REPORT INFORMATION
  Report Type: Spontaneous
  Country: US (occurrence: None)
  Receive Date: 20130305
  Receipt Date: 20130305
  Transmission Date: 20140127
  Serious: Yes (Other)
  Sender: FDA-Public Use
  Company Number: 163-21880-12090290

PATIENT
  Age: 58 Year
  Sex: Female
  Weight: 59.88 kg

DRUGS (11)
  1. REVLIMID (LENALIDOMIDE) [Suspect]
     Indication: PLASMA CELL MYELOMA
     Route: 048
  2. ACYCLOVIR [Concomitant]
  3. ASPIRIN [Concomitant]
  4. CALCIUM [Concomitant]
  5. DEXAMETHASONE [Concomitant]
  6. MULTIVITAMINS [Concomitant]
  7. PHOSPHO [Concomitant]
  8. POTASSIUM [Concomitant]
  9. ZOMETA (ZOLEDRONIC ACID) [Concomitant]
  10. OMEPRAZOLE [Concomitant]
  11. VELCADE (BORTEZOMIB) [Concomitant]

REACTIONS (7)
  - Blood count abnormal [None]
  - Diarrhoea [None]
  - Blood potassium decreased [None]
  - Platelet count decreased [None]
  - Pyrexia [None]
  - Blood phosphorus decreased [None]
  - Neuropathy peripheral [None]
